FAERS Safety Report 19221940 (Version 1)
Quarter: 2021Q2

REPORT INFORMATION
  Report Type: Spontaneous
  Country: JP (occurrence: JP)
  Receive Date: 20210506
  Receipt Date: 20210506
  Transmission Date: 20210717
  Serious: Yes (Other)
  Sender: FDA-Public Use
  Company Number: JP-MYLANLABS-2020M1099521

PATIENT
  Age: 8 Decade
  Sex: Female

DRUGS (3)
  1. MAGNESIUM OXIDE. [Suspect]
     Active Substance: MAGNESIUM OXIDE
     Indication: CONSTIPATION
     Route: 065
  2. XALKORI [Suspect]
     Active Substance: CRIZOTINIB
     Indication: PRODUCT USED FOR UNKNOWN INDICATION
     Route: 065
  3. BIO?THREE [Suspect]
     Active Substance: HERBALS
     Indication: CONSTIPATION
     Dosage: UNK
     Route: 065

REACTIONS (2)
  - Metastases to central nervous system [Unknown]
  - Oedema [Recovered/Resolved]
